FAERS Safety Report 8482044-6 (Version None)
Quarter: 2012Q3

REPORT INFORMATION
  Report Type: 
  Country: None (occurrence: None)
  Receive Date: 20120702
  Receipt Date: 20120628
  Transmission Date: 20120928
  Serious: Yes (Other)
  Sender: FDA-Public Use
  Company Number: PHHY2012CA052448

PATIENT
  Sex: Female

DRUGS (1)
  1. ZOLEDRONOC ACID [Suspect]
     Indication: OSTEOPOROSIS
     Dosage: 5 MG, UNK
     Route: 042
     Dates: start: 20120608

REACTIONS (6)
  - FALL [None]
  - CHEST PAIN [None]
  - ABDOMINAL INJURY [None]
  - ABDOMINAL PAIN [None]
  - FACE INJURY [None]
  - THROAT LESION [None]
